FAERS Safety Report 12912252 (Version 3)
Quarter: 2016Q4

REPORT INFORMATION
  Report Type: Spontaneous
  Country: DE (occurrence: DE)
  Receive Date: 20161104
  Receipt Date: 20161230
  Transmission Date: 20170207
  Serious: Yes (Other)
  Sender: FDA-Public Use
  Company Number: DE-JNJFOC-20161025539

PATIENT
  Age: 5 Year
  Sex: Female
  Weight: 17.7 kg

DRUGS (10)
  1. INFLIXIMAB, RECOMBINANT [Suspect]
     Active Substance: INFLIXIMAB
     Indication: UVEITIS
     Route: 042
     Dates: start: 20061207, end: 20070425
  2. NAPROXEN. [Concomitant]
     Active Substance: NAPROXEN
     Indication: JUVENILE IDIOPATHIC ARTHRITIS
     Route: 065
     Dates: start: 20061101, end: 20070209
  3. METHOTREXATE. [Concomitant]
     Active Substance: METHOTREXATE
     Indication: JUVENILE IDIOPATHIC ARTHRITIS
     Route: 048
     Dates: start: 20060912, end: 20070429
  4. INFLIXIMAB, RECOMBINANT [Suspect]
     Active Substance: INFLIXIMAB
     Indication: JUVENILE IDIOPATHIC ARTHRITIS
     Route: 042
     Dates: start: 20061207, end: 20070425
  5. URBASON [Concomitant]
     Active Substance: METHYLPREDNISOLONE
     Indication: JUVENILE IDIOPATHIC ARTHRITIS
     Dosage: 3 DAYS PER MONTH
     Route: 065
     Dates: start: 20060912, end: 20070429
  6. DECORTIN H [Concomitant]
     Active Substance: PREDNISOLONE
     Indication: JUVENILE IDIOPATHIC ARTHRITIS
     Route: 065
     Dates: start: 20070209, end: 20070510
  7. METHOTREXATE. [Concomitant]
     Active Substance: METHOTREXATE
     Indication: UVEITIS
     Route: 048
     Dates: start: 20060912, end: 20070429
  8. DECORTIN H [Concomitant]
     Active Substance: PREDNISOLONE
     Indication: UVEITIS
     Route: 065
     Dates: start: 20070209, end: 20070510
  9. URBASON [Concomitant]
     Active Substance: METHYLPREDNISOLONE
     Indication: UVEITIS
     Dosage: 3 DAYS PER MONTH
     Route: 065
     Dates: start: 20060912, end: 20070429
  10. NAPROXEN. [Concomitant]
     Active Substance: NAPROXEN
     Indication: UVEITIS
     Route: 065
     Dates: start: 20061101, end: 20070209

REACTIONS (3)
  - Lymphoproliferative disorder [Recovered/Resolved]
  - Product use issue [Unknown]
  - Off label use [Unknown]

NARRATIVE: CASE EVENT DATE: 20070413
